FAERS Safety Report 8929039 (Version 1)
Quarter: 2012Q4

REPORT INFORMATION
  Report Type: 
  Country: US (occurrence: US)
  Receive Date: 20121127
  Receipt Date: 20121127
  Transmission Date: 20130627
  Serious: Yes (Hospitalization)
  Sender: FDA-Public Use
  Company Number: US-ELI_LILLY_AND_COMPANY-US201211005712

PATIENT
  Age: 56 Year
  Sex: Male
  Weight: 99.77 kg

DRUGS (4)
  1. BYDUREON [Suspect]
     Indication: TYPE 2 DIABETES MELLITUS
     Dosage: 2 mg, weekly (1/W)
     Route: 058
     Dates: start: 201205
  2. ACTOS [Concomitant]
     Indication: TYPE 2 DIABETES MELLITUS
     Dosage: 15 mg, qd
     Route: 048
  3. ACTOS [Concomitant]
     Dosage: 30 mg, qd
     Route: 048
     Dates: start: 201210
  4. METFORMIN [Concomitant]
     Indication: TYPE 2 DIABETES MELLITUS
     Dosage: 1000 mg, bid
     Route: 048

REACTIONS (2)
  - Chondropathy [Recovered/Resolved]
  - Injection site haemorrhage [Recovering/Resolving]
